FAERS Safety Report 17730341 (Version 2)
Quarter: 2020Q2

REPORT INFORMATION
  Report Type: Report from Study
  Country: DE (occurrence: DE)
  Receive Date: 20200430
  Receipt Date: 20200526
  Transmission Date: 20200714
  Serious: Yes (Hospitalization, Other)
  Sender: FDA-Public Use
  Company Number: DE-PFIZER INC-2020171862

PATIENT
  Age: 13 Year
  Sex: Female
  Weight: 70.3 kg

DRUGS (6)
  1. SOMATROPIN. [Suspect]
     Active Substance: SOMATROPIN
     Dosage: 1.6 MG, QD
     Route: 065
     Dates: start: 20140215, end: 201703
  2. MINRIN [Concomitant]
     Active Substance: DESMOPRESSIN ACETATE
     Dosage: 1-2 PUFFS/DAY
     Route: 065
  3. SOMATROPIN. [Suspect]
     Active Substance: SOMATROPIN
     Indication: GROWTH HORMONE DEFICIENCY
     Dosage: 1.6 MG, QD
     Route: 065
     Dates: start: 20140215, end: 201703
  4. FEMOSTON [Concomitant]
     Active Substance: DYDROGESTERONE\ESTRADIOL
     Dosage: 1 DF, QD
     Route: 065
  5. LEVOTHYROXINE. [Concomitant]
     Active Substance: LEVOTHYROXINE
     Dosage: 75 UG, QD
     Route: 065
  6. HYDROCORTISONE. [Concomitant]
     Active Substance: HYDROCORTISONE
     Dosage: 7.5-5-5 MG/DAY
     Route: 065

REACTIONS (8)
  - Hypothalamo-pituitary disorder [Not Recovered/Not Resolved]
  - Dizziness [Unknown]
  - Seizure [Unknown]
  - Visual impairment [Unknown]
  - Palpitations [Unknown]
  - Amnesia [Unknown]
  - Hemianopia [Not Recovered/Not Resolved]
  - Confusional state [Unknown]

NARRATIVE: CASE EVENT DATE: 201612
